FAERS Safety Report 8915734 (Version 1)
Quarter: 2012Q4

REPORT INFORMATION
  Report Type: Report from Study
  Country: US (occurrence: US)
  Receive Date: 20121119
  Receipt Date: 20121119
  Transmission Date: 20130627
  Serious: Yes (Other)
  Sender: FDA-Public Use
  Company Number: US-ABBOTT-12P-163-1007483-00

PATIENT
  Age: 30 Year

DRUGS (9)
  1. HUMIRA [Suspect]
     Indication: CROHN^S DISEASE
     Dates: end: 2010
  2. HUMIRA [Suspect]
     Indication: PSORIASIS
     Dates: start: 201111
  3. LEVOTHYROXINE [Concomitant]
     Indication: PRODUCT USED FOR UNKNOWN INDICATION
  4. XYZAL [Concomitant]
     Indication: PRODUCT USED FOR UNKNOWN INDICATION
  5. SINGULAIR [Concomitant]
     Indication: PRODUCT USED FOR UNKNOWN INDICATION
     Dosage: 10MG QHS
  6. LORAZEPAM [Concomitant]
     Indication: PRODUCT USED FOR UNKNOWN INDICATION
     Dosage: 1 MG QHS
  7. NEXIUM [Concomitant]
     Indication: PRODUCT USED FOR UNKNOWN INDICATION
  8. GEODON [Concomitant]
     Indication: BIPOLAR DISORDER
     Dosage: 2 tab QHS
  9. SOLODYN [Concomitant]
     Indication: ACNE CYSTIC

REACTIONS (7)
  - Colectomy total [Not Recovered/Not Resolved]
  - Psoriasis [Unknown]
  - Ileostomy [Unknown]
  - Hypoaesthesia [Not Recovered/Not Resolved]
  - Dyskinesia [Not Recovered/Not Resolved]
  - Bipolar disorder [Unknown]
  - Acne cystic [Unknown]
